FAERS Safety Report 24350461 (Version 2)
Quarter: 2024Q4

REPORT INFORMATION
  Report Type: Spontaneous
  Country: JP (occurrence: None)
  Receive Date: 20240923
  Receipt Date: 20241001
  Transmission Date: 20250115
  Serious: Yes (Hospitalization, Other)
  Sender: ORION
  Company Number: JP-Orion Corporation ORION PHARMA-ENTC2024-0114

PATIENT
  Age: 77 Year
  Sex: Male

DRUGS (1)
  1. CARBIDOPA\ENTACAPONE\LEVODOPA [Suspect]
     Active Substance: CARBIDOPA\ENTACAPONE\LEVODOPA
     Indication: Parkinson^s disease

REACTIONS (4)
  - Urinary retention [Unknown]
  - Pyrexia [Unknown]
  - Hydronephrosis [Unknown]
  - Urinary tract infection [Unknown]
